FAERS Safety Report 20652833 (Version 2)
Quarter: 2022Q2

REPORT INFORMATION
  Report Type: Report from Study
  Country: CA (occurrence: CA)
  Receive Date: 20220330
  Receipt Date: 20220401
  Transmission Date: 20220721
  Serious: Yes (Hospitalization)
  Sender: FDA-Public Use
  Company Number: CA-MYLANLABS-2022M1022829

PATIENT
  Age: 42 Year
  Sex: Female

DRUGS (1)
  1. HULIO [Suspect]
     Active Substance: ADALIMUMAB-FKJP
     Indication: Ankylosing spondylitis
     Dosage: 40 MILLIGRAM, BIWEEKLY
     Route: 058

REACTIONS (5)
  - Dizziness [Unknown]
  - Kidney infection [Unknown]
  - Pharyngitis streptococcal [Unknown]
  - Headache [Unknown]
  - Product dose omission issue [Unknown]
